FAERS Safety Report 4593855-1 (Version None)
Quarter: 2005Q1

REPORT INFORMATION
  Report Type: 
  Country: None (occurrence: None)
  Receive Date: 20050301
  Receipt Date: 20040624
  Transmission Date: 20050727
  Serious: Yes (Hospitalization)
  Sender: FDA-Public Use
  Company Number: 200412228JP

PATIENT
  Age: 19 Year
  Sex: Female
  Weight: 57 kg

DRUGS (6)
  1. KETEK [Suspect]
     Indication: BRONCHITIS
     Route: 048
     Dates: start: 20040618, end: 20040619
  2. PL GRAN. [Suspect]
     Indication: BRONCHITIS
     Route: 048
     Dates: start: 20040617, end: 20040619
  3. ASGEN TAB [Suspect]
     Indication: BRONCHITIS
     Route: 048
     Dates: start: 20040618, end: 20040619
  4. COUGHNOL [Suspect]
     Indication: BRONCHITIS
     Route: 048
     Dates: start: 20040618, end: 20040619
  5. PL GRAN. [Concomitant]
     Route: 048
     Dates: start: 20040617, end: 20040618
  6. FLOMOX [Concomitant]
     Indication: BRONCHITIS
     Route: 048
     Dates: start: 20040617, end: 20040618

REACTIONS (9)
  - EOSINOPHIL PERCENTAGE INCREASED [None]
  - LYMPHADENITIS [None]
  - LYMPHOCYTE PERCENTAGE DECREASED [None]
  - NEUTROPHIL PERCENTAGE INCREASED [None]
  - OEDEMA MOUTH [None]
  - PYREXIA [None]
  - STOMATITIS [None]
  - SWELLING FACE [None]
  - WHITE BLOOD CELL COUNT INCREASED [None]
